FAERS Safety Report 23078797 (Version 1)
Quarter: 2023Q4

REPORT INFORMATION
  Report Type: Report from Study
  Country: GB (occurrence: GB)
  Receive Date: 20231018
  Receipt Date: 20231018
  Transmission Date: 20240109
  Serious: Yes (Hospitalization)
  Sender: FDA-Public Use
  Company Number: GB-SA-SAC20231012000018

PATIENT

DRUGS (6)
  1. CEMIPLIMAB [Suspect]
     Active Substance: CEMIPLIMAB
     Indication: Penile cancer
     Dosage: 350 MG, Q3W
     Route: 065
     Dates: start: 20231004, end: 20231004
  2. CISPLATIN [Concomitant]
     Active Substance: CISPLATIN
     Indication: Penile cancer
     Dosage: 145 MG, Q3W
     Route: 042
     Dates: start: 20231004, end: 20231004
  3. FLUOROURACIL [Concomitant]
     Active Substance: FLUOROURACIL
     Indication: Penile cancer
     Dosage: 8200 MG, Q3W
     Route: 065
     Dates: start: 20231005
  4. RAMIPRIL [Concomitant]
     Active Substance: RAMIPRIL
     Indication: Hypertension
     Dosage: 10 MG, QD
     Route: 048
     Dates: start: 201711
  5. AMLODIPINE [Concomitant]
     Active Substance: AMLODIPINE BESYLATE
     Indication: Hypertension
     Dosage: 5 MG, QD
     Route: 048
     Dates: start: 201711
  6. CLOTRIMAZOLE [Concomitant]
     Active Substance: CLOTRIMAZOLE
     Indication: Fungal infection
     Dosage: UNK, TID
     Dates: start: 20231004

REACTIONS (1)
  - Anaphylactic reaction [Recovered/Resolved]

NARRATIVE: CASE EVENT DATE: 20231004
